FAERS Safety Report 15781891 (Version 3)
Quarter: 2019Q1

REPORT INFORMATION
  Report Type: Spontaneous
  Country: FR (occurrence: FR)
  Receive Date: 20190102
  Receipt Date: 20190311
  Transmission Date: 20190417
  Serious: Yes (Other)
  Sender: FDA-Public Use
  Company Number: FR-PFIZER INC-2018521936

PATIENT

DRUGS (6)
  1. DACARBAZINE. [Suspect]
     Active Substance: DACARBAZINE
     Indication: HODGKIN^S DISEASE STAGE II
     Dosage: 730 MG, CYCLIC (AT DAY 1 AND 15 OF A 28-DAY CYCLE)
     Route: 064
  2. ONDANSETRON [Concomitant]
     Active Substance: ONDANSETRON
     Indication: PROPHYLAXIS OF NAUSEA AND VOMITING
     Dosage: UNK
     Route: 064
  3. DOXORUBICIN HCL [Suspect]
     Active Substance: DOXORUBICIN HYDROCHLORIDE
     Indication: HODGKIN^S DISEASE STAGE II
     Dosage: 48 MG, CYCLIC (AT DAY 1 AND 15 OF A 28-DAY CYCLE)
     Route: 064
  4. DEXAMETHASONE. [Concomitant]
     Active Substance: DEXAMETHASONE
     Indication: PROPHYLAXIS OF NAUSEA AND VOMITING
     Dosage: 10 MG, UNK
     Route: 064
  5. VINBLASTINE [Suspect]
     Active Substance: VINBLASTINE
     Indication: HODGKIN^S DISEASE STAGE II
     Dosage: 10 MG, CYCLIC (AT DAY 1 AND 15 OF A 28-DAY CYCLE)
     Route: 064
  6. BLEOMYCIN [Suspect]
     Active Substance: BLEOMYCIN SULFATE
     Indication: HODGKIN^S DISEASE STAGE II
     Dosage: 19.2 MG, CYCLIC (AT DAY 1 AND 15 OF A 28-DAY CYCLE)
     Route: 064

REACTIONS (2)
  - Maternal exposure during pregnancy [Unknown]
  - Neonatal cardiac failure [Recovered/Resolved]
